FAERS Safety Report 10508735 (Version 2)
Quarter: 2015Q2

REPORT INFORMATION
  Report Type: Report from Study
  Country: US (occurrence: US)
  Receive Date: 20141009
  Receipt Date: 20150427
  Transmission Date: 20150821
  Serious: Yes (Hospitalization)
  Sender: FDA-Public Use
  Company Number: US-EXELIXIS-XL18414004805

PATIENT
  Age: 65 Year
  Sex: Male
  Weight: 120 kg

DRUGS (13)
  1. GABAPENTIN. [Concomitant]
     Active Substance: GABAPENTIN
  2. LORAZEPAM. [Concomitant]
     Active Substance: LORAZEPAM
  3. PANTOPRAZOLE [Concomitant]
     Active Substance: PANTOPRAZOLE SODIUM
  4. XL184 [Suspect]
     Active Substance: CABOZANTINIB
     Indication: RENAL CELL CARCINOMA
     Dosage: 60 MG, QD
     Route: 048
     Dates: start: 20140716, end: 20140918
  5. XL184 [Suspect]
     Active Substance: CABOZANTINIB
     Dosage: 20 MG, QD?10-OCT-2014
     Route: 048
  6. LASIX [Concomitant]
     Active Substance: FUROSEMIDE
  7. XL184 [Suspect]
     Active Substance: CABOZANTINIB
     Dosage: 40 MG, QD?START DATE 21-SEP-2014
     Route: 048
     Dates: end: 20140924
  8. BACITRACIN. [Concomitant]
     Active Substance: BACITRACIN
  9. METOLAZONE. [Concomitant]
     Active Substance: METOLAZONE
  10. LEVOTHYROXINE SODIUM. [Concomitant]
     Active Substance: LEVOTHYROXINE SODIUM
  11. COLACE [Concomitant]
     Active Substance: DOCUSATE SODIUM
  12. PAROXETINE [Concomitant]
     Active Substance: PAROXETINE\PAROXETINE HYDROCHLORIDE
  13. TAMSULOSIN [Concomitant]
     Active Substance: TAMSULOSIN

REACTIONS (10)
  - Fatigue [Recovered/Resolved]
  - Malaise [None]
  - Syncope [None]
  - Hypokalaemia [None]
  - Delirium [Recovered/Resolved]
  - Pain in extremity [None]
  - Muscle spasms [None]
  - Disturbance in attention [None]
  - Blood creatinine increased [None]
  - Hypoaesthesia [None]

NARRATIVE: CASE EVENT DATE: 20140915
